FAERS Safety Report 8954224 (Version 2)
Quarter: 2012Q4

REPORT INFORMATION
  Report Type: 
  Country: GT (occurrence: GT)
  Receive Date: 20121207
  Receipt Date: 20121217
  Transmission Date: 20130627
  Serious: Yes (Hospitalization)
  Sender: FDA-Public Use
  Company Number: GT-ABBOTT-12P-069-1015104-00

PATIENT
  Age: 38 Year
  Sex: Male
  Weight: 69.92 kg

DRUGS (1)
  1. CONTROLIP [Suspect]
     Indication: HYPERTRIGLYCERIDAEMIA
     Route: 048
     Dates: start: 201208

REACTIONS (5)
  - Gastrointestinal infection [Recovered/Resolved]
  - Drug ineffective [Not Recovered/Not Resolved]
  - Abdominal pain upper [Recovered/Resolved]
  - Flatulence [Recovered/Resolved]
  - Pyrexia [Recovered/Resolved]
